FAERS Safety Report 9908602 (Version 1)
Quarter: 2014Q1

REPORT INFORMATION
  Report Type: Spontaneous
  Country: US (occurrence: None)
  Receive Date: 20140212
  Receipt Date: 20140212
  Transmission Date: 20141002
  Serious: Yes (Other)
  Sender: FDA-Public Use
  Company Number: None

PATIENT
  Sex: Female

DRUGS (1)
  1. CREST CAVITY PROTECTION COOL MINT GEL [Suspect]
     Dates: start: 20131101, end: 20131213

REACTIONS (3)
  - Glossodynia [None]
  - Ageusia [None]
  - Pain [None]
